FAERS Safety Report 4869148-1 (Version None)
Quarter: 2005Q4

REPORT INFORMATION
  Report Type: 
  Country: None (occurrence: None)
  Receive Date: 20051228
  Receipt Date: 20051228
  Transmission Date: 20060501
  Serious: Yes (Death, Hospitalization)
  Sender: FDA-Public Use
  Company Number: None

PATIENT
  Age: 80 Year
  Sex: Male
  Weight: 56.246 kg

DRUGS (14)
  1. AGRYLIN [Suspect]
     Indication: MYELOPROLIFERATIVE DISORDER
     Dosage: 2 MG AM AND 1 MG PM PO
     Route: 048
     Dates: start: 19980712, end: 20051001
  2. AGRYLIN [Suspect]
     Indication: THROMBOCYTHAEMIA
     Dosage: 2 MG AM AND 1 MG PM PO
     Route: 048
     Dates: start: 19980712, end: 20051001
  3. HYDREA [Concomitant]
  4. TRAZODONE HCL [Concomitant]
  5. PROTONIX [Concomitant]
  6. COMBIVENT [Concomitant]
  7. LASIX [Concomitant]
  8. LISINOPRIL [Concomitant]
  9. HYTRIN [Concomitant]
  10. RANITIDINE [Concomitant]
  11. TRIAMCINOLONE NEBULIZER [Concomitant]
  12. ALBUTEROL NEBULITZER [Concomitant]
  13. ATROVENT [Concomitant]
  14. PROCRIT [Concomitant]

REACTIONS (2)
  - CARDIAC FAILURE CONGESTIVE [None]
  - EJECTION FRACTION DECREASED [None]
